FAERS Safety Report 4823681-7 (Version None)
Quarter: 2005Q4

REPORT INFORMATION
  Report Type: 
  Country: None (occurrence: None)
  Receive Date: 20051107
  Receipt Date: 20051024
  Transmission Date: 20060501
  Serious: Yes (Death)
  Sender: FDA-Public Use
  Company Number: 2005147750

PATIENT
  Sex: Male

DRUGS (10)
  1. PREDNISONE [Suspect]
     Indication: ILL-DEFINED DISORDER
     Dosage: 3 MG (1 MG, 3 IN 1 D)
  2. TIOTROPIUM (TIOTROPIUM) [Suspect]
     Indication: ILL-DEFINED DISORDER
     Dosage: 18 MCG (18 MCG, 1 IN 1 D), INHALATION
     Route: 055
     Dates: start: 20030115
  3. BECLOMETHASONE (BECLOMETASONE) [Suspect]
     Indication: ILL-DEFINED DISORDER
  4. FUROSEMIDE [Suspect]
     Indication: ILL-DEFINED DISORDER
     Dosage: 40 MG (40 MG, 1 IN 1 D)
     Dates: start: 20011129
  5. RAMIPRIL [Suspect]
     Indication: ILL-DEFINED DISORDER
     Dosage: 2.5 MG (2.5 MG, 1 IN 1 D)
     Dates: start: 20001023
  6. ALBUTEROL [Suspect]
     Indication: ILL-DEFINED DISORDER
     Dosage: 20MG/10ML (4 IN 1 D)
     Dates: start: 20000606
  7. THEOPHYLLINE [Concomitant]
  8. WARFARIN SODIUM [Concomitant]
  9. ALBUTEROL [Concomitant]
  10. ENSURE PLUS (CARBOHYDRATES NOS, ELECTROLYTES NOS, FATTY ACIDS NOS, MIN [Concomitant]

REACTIONS (1)
  - CHRONIC OBSTRUCTIVE PULMONARY DISEASE [None]
